FAERS Safety Report 5395440-0 (Version None)
Quarter: 2007Q3

REPORT INFORMATION
  Report Type: 
  Country: None (occurrence: None)
  Receive Date: 20070724
  Receipt Date: 20070717
  Transmission Date: 20080115
  Serious: Yes (Life-Threatening, Hospitalization, Other)
  Sender: FDA-Public Use
  Company Number: A0649291A

PATIENT
  Age: 15 Year
  Sex: Female

DRUGS (2)
  1. LAMICTAL [Suspect]
     Route: 048
     Dates: end: 20070412
  2. ADDERALL XR 10 [Concomitant]

REACTIONS (20)
  - ASTHENIA [None]
  - DRUG TOXICITY [None]
  - EATING DISORDER [None]
  - EYE DISORDER [None]
  - EYE SWELLING [None]
  - GALLBLADDER ENLARGEMENT [None]
  - HEPATIC ENZYME INCREASED [None]
  - HYPERSENSITIVITY [None]
  - INFECTION [None]
  - MOUTH ULCERATION [None]
  - MULTI-ORGAN FAILURE [None]
  - NAUSEA [None]
  - PAIN [None]
  - PYREXIA [None]
  - RASH [None]
  - RASH MACULAR [None]
  - RENAL FAILURE [None]
  - ROCKY MOUNTAIN SPOTTED FEVER [None]
  - TREATMENT NONCOMPLIANCE [None]
  - VOMITING [None]
